FAERS Safety Report 16349638 (Version 1)
Quarter: 2019Q2

REPORT INFORMATION
  Report Type: Spontaneous
  Country: US (occurrence: US)
  Receive Date: 20190523
  Receipt Date: 20190523
  Transmission Date: 20190711
  Serious: Yes (Hospitalization, Other)
  Sender: FDA-Public Use
  Company Number: US-PFIZER INC-2019205164

PATIENT
  Age: 72 Year
  Sex: Female

DRUGS (17)
  1. GARLIC [ALLIUM SATIVUM] [Concomitant]
     Active Substance: GARLIC
     Dosage: 2000 MG, 1X/DAY
  2. RITUXAN [Concomitant]
     Active Substance: RITUXIMAB
     Dosage: UNK [INFUSIONS EVERY FOUR TO SIX MONTHS FOR THREE HOURS EACH TIME]
  3. TIZANIDINE HCL [Suspect]
     Active Substance: TIZANIDINE HYDROCHLORIDE
     Dosage: 2 MG, UNK (2MG ONCE EVERY SIX TO EIGHT HOURS)
     Route: 048
     Dates: start: 201903, end: 20190322
  4. GINKGO SMART MAXIMUM FOCUS + MEMORY [Suspect]
     Active Substance: GINKGO
     Indication: NUTRITIONAL SUPPLEMENTATION
     Dosage: 1 DF, 1X/DAY
     Route: 048
     Dates: start: 201903, end: 201904
  5. CALCIUM + VITAMIN D3 [Concomitant]
     Active Substance: CALCIUM\CHOLECALCIFEROL
     Dosage: CALCIUM 2000MG PLUS VITAMIN D3 1000 IU, 1X/DAY
  6. IRON FERROUS SULFATE [Concomitant]
     Dosage: IRON 65MG/325MG FERROUS SULFATE, 1X/DAY
  7. MULTIVITAMIN PLUS OMEGA-3 [Concomitant]
     Dosage: 1 DF, 1X/DAY
  8. CINNAMON. [Concomitant]
     Active Substance: CINNAMON
     Dosage: 2000 MG, 2X/DAY
  9. LYRICA [Suspect]
     Active Substance: PREGABALIN
     Dosage: 25 MG, 3X/DAY
     Route: 048
     Dates: start: 201903, end: 20190322
  10. OMEGA 3-6-9 [Concomitant]
     Active Substance: FISH OIL
     Dosage: UNK, 1X/DAY
  11. PROBIOTICS [Concomitant]
     Active Substance: PROBIOTICS NOS
     Dosage: 1 DF, 1X/DAY
  12. VITAMIN D3 [Concomitant]
     Active Substance: CHOLECALCIFEROL
     Dosage: 5000 IU, 1X/DAY
  13. DICLOFENAC [Suspect]
     Active Substance: DICLOFENAC
     Indication: PAIN
     Dosage: 50 MG, 1X/DAY
     Route: 048
     Dates: start: 201903, end: 20190322
  14. TRIPLE STRENGTH NONI SUPREME WITH ACAI [Suspect]
     Active Substance: DIETARY SUPPLEMENT\HERBALS
     Indication: NUTRITIONAL SUPPLEMENTATION
     Dosage: ONE TO ONE AND ONE HALF CAPSULES
     Route: 048
     Dates: start: 2016, end: 201904
  15. VITAMIN B12 [Concomitant]
     Active Substance: CYANOCOBALAMIN
     Dosage: UNK UNK, MONTHLY
  16. BIOTIN [Concomitant]
     Active Substance: BIOTIN
     Dosage: 10000 UG, 1X/DAY [10,000MCG ONCE PER DAY]
  17. PROCRIT [Concomitant]
     Active Substance: ERYTHROPOIETIN
     Indication: HAEMOGLOBIN DECREASED
     Dosage: UNK, MONTHLY

REACTIONS (2)
  - Hepatic enzyme increased [Recovering/Resolving]
  - Breast pain [Recovered/Resolved]

NARRATIVE: CASE EVENT DATE: 201903
